FAERS Safety Report 12993054 (Version 1)
Quarter: 2016Q4

REPORT INFORMATION
  Report Type: Spontaneous
  Country: US (occurrence: US)
  Receive Date: 20161202
  Receipt Date: 20161202
  Transmission Date: 20170207
  Serious: Yes (Hospitalization, Other)
  Sender: FDA-Public Use
  Company Number: US-AUROBINDO-AUR-APL-2016-14573

PATIENT
  Age: 30 Year
  Sex: Male

DRUGS (1)
  1. LISINOPRIL. [Suspect]
     Active Substance: LISINOPRIL
     Indication: PRODUCT USED FOR UNKNOWN INDICATION
     Dosage: UNK
     Route: 065

REACTIONS (9)
  - Cholestasis [Recovered/Resolved]
  - Pancreatitis [Recovered/Resolved]
  - Hypertension [Recovered/Resolved]
  - Jaundice [Recovered/Resolved]
  - Abdominal tenderness [Recovered/Resolved]
  - Jaundice cholestatic [Recovered/Resolved]
  - Abdominal pain upper [Recovered/Resolved]
  - Pyrexia [Recovered/Resolved]
  - Chromaturia [Recovered/Resolved]
